FAERS Safety Report 9255099 (Version 1)
Quarter: 2013Q2

REPORT INFORMATION
  Report Type: Spontaneous
  Country: BR (occurrence: BR)
  Receive Date: 20130425
  Receipt Date: 20130425
  Transmission Date: 20140414
  Serious: Yes (Other)
  Sender: FDA-Public Use
  Company Number: BR-ELI_LILLY_AND_COMPANY-BR201304004425

PATIENT
  Sex: Male
  Weight: 65 kg

DRUGS (2)
  1. HUMULIN NPH [Suspect]
     Indication: TYPE 1 DIABETES MELLITUS
     Dosage: UNK, TID
     Route: 058
  2. HUMALOG LISPRO [Suspect]
     Indication: TYPE 1 DIABETES MELLITUS
     Dosage: UNK, TID
     Route: 058

REACTIONS (9)
  - Weight decreased [Recovered/Resolved]
  - Apathy [Recovered/Resolved]
  - Abasia [Recovered/Resolved]
  - Decreased appetite [Recovered/Resolved]
  - Food craving [Recovered/Resolved]
  - Feeling abnormal [Recovered/Resolved]
  - Blood glucose increased [Recovered/Resolved]
  - Underdose [Unknown]
  - Injection site mass [Unknown]
